FAERS Safety Report 23609244 (Version 4)
Quarter: 2024Q2

REPORT INFORMATION
  Report Type: Spontaneous
  Country: JP (occurrence: JP)
  Receive Date: 20240308
  Receipt Date: 20240624
  Transmission Date: 20240716
  Serious: Yes (Other)
  Sender: FDA-Public Use
  Company Number: JP-ONO-2023JP031598

PATIENT
  Age: 35 Year
  Sex: Female

DRUGS (15)
  1. OPDIVO [Suspect]
     Active Substance: NIVOLUMAB
     Indication: Malignant melanoma
     Route: 041
     Dates: start: 20230111, end: 20230222
  2. OPDIVO [Suspect]
     Active Substance: NIVOLUMAB
     Route: 041
     Dates: end: 20231108
  3. BRAFTOVI [Suspect]
     Active Substance: ENCORAFENIB
     Indication: Malignant melanoma
     Route: 048
     Dates: start: 20231130, end: 20231213
  4. BRAFTOVI [Suspect]
     Active Substance: ENCORAFENIB
     Route: 048
     Dates: start: 20231215, end: 20231220
  5. BRAFTOVI [Suspect]
     Active Substance: ENCORAFENIB
     Dosage: RESUMED
     Route: 048
  6. BRAFTOVI [Suspect]
     Active Substance: ENCORAFENIB
     Dosage: DOSE REDUCTION
     Route: 048
  7. BRAFTOVI [Suspect]
     Active Substance: ENCORAFENIB
     Dosage: DOSE REDUCTION BY 2 LEVELS
     Route: 048
  8. BRAFTOVI [Suspect]
     Active Substance: ENCORAFENIB
     Dosage: DOSE REDUCTION BY 2 LEVELS
     Route: 048
     Dates: end: 20240419
  9. MEKTOVI [Suspect]
     Active Substance: BINIMETINIB
     Indication: Malignant melanoma
     Route: 048
     Dates: start: 20231130, end: 20231213
  10. MEKTOVI [Suspect]
     Active Substance: BINIMETINIB
     Route: 048
     Dates: start: 20231215, end: 20231220
  11. MEKTOVI [Suspect]
     Active Substance: BINIMETINIB
     Dosage: RESUMED
     Route: 048
  12. MEKTOVI [Suspect]
     Active Substance: BINIMETINIB
     Dosage: DOSE REDUCED BY 2 ;EVEL
     Route: 048
  13. MEKTOVI [Suspect]
     Active Substance: BINIMETINIB
     Dosage: DOSE REDUCED BY 2 LEVEL
     Route: 048
  14. MEKTOVI [Suspect]
     Active Substance: BINIMETINIB
     Route: 048
     Dates: end: 20240419
  15. ACETAMINOPHEN [Concomitant]
     Active Substance: ACETAMINOPHEN
     Indication: Pain

REACTIONS (5)
  - Diarrhoea [Recovered/Resolved]
  - Myalgia [Recovered/Resolved]
  - Astigmatism [Recovering/Resolving]
  - Immune-mediated lung disease [Recovering/Resolving]
  - Metastatic malignant melanoma [Unknown]

NARRATIVE: CASE EVENT DATE: 20231129
